FAERS Safety Report 12300135 (Version 1)
Quarter: 2016Q2

REPORT INFORMATION
  Report Type: Spontaneous
  Country: US (occurrence: None)
  Receive Date: 20160422
  Receipt Date: 20160422
  Transmission Date: 20160815
  Serious: No
  Sender: FDA-Public Use
  Company Number: None

PATIENT
  Age: 46 Year
  Sex: Female

DRUGS (1)
  1. CYCLOSPORINE CAP 25MG [Suspect]
     Active Substance: CYCLOSPORINE

REACTIONS (1)
  - Myalgia [None]

NARRATIVE: CASE EVENT DATE: 20160421
